FAERS Safety Report 7715123-9 (Version None)
Quarter: 2011Q3

REPORT INFORMATION
  Report Type: 
  Country: None (occurrence: None)
  Receive Date: 20110829
  Receipt Date: 20110817
  Transmission Date: 20111222
  Serious: Yes (Other)
  Sender: FDA-Public Use
  Company Number: PHEH2010US03493

PATIENT
  Sex: Female

DRUGS (5)
  1. HYDROCHLOROTHIAZIDE [Concomitant]
  2. ATENOLOL [Concomitant]
  3. IBUPROFEN [Concomitant]
  4. ZOMETA [Suspect]
     Indication: MULTIPLE MYELOMA
     Dosage: UNK
     Dates: start: 20020101, end: 20050101
  5. COZAAR [Concomitant]

REACTIONS (29)
  - OSTEONECROSIS OF JAW [None]
  - ATROPHIC VULVOVAGINITIS [None]
  - MACULAR DEGENERATION [None]
  - ASTHENIA [None]
  - PARAESTHESIA [None]
  - CATARACT CORTICAL [None]
  - VERTIGO [None]
  - MYOCARDIAL INFARCTION [None]
  - GASTROOESOPHAGEAL REFLUX DISEASE [None]
  - OVERGROWTH BACTERIAL [None]
  - CEREBRAL CALCIFICATION [None]
  - ANXIETY [None]
  - OSTEITIS [None]
  - FALL [None]
  - OSTEOARTHRITIS [None]
  - OSTEOPOROSIS [None]
  - AMNESIA [None]
  - NERVE ROOT LESION [None]
  - GENITAL DISCOMFORT [None]
  - HYPERKALAEMIA [None]
  - DISABILITY [None]
  - PAIN [None]
  - HYPOAESTHESIA [None]
  - ANHEDONIA [None]
  - MENINGIOMA [None]
  - ARTHRALGIA [None]
  - INJURY [None]
  - URINARY INCONTINENCE [None]
  - SPINAL COLUMN STENOSIS [None]
